FAERS Safety Report 18425323 (Version 2)
Quarter: 2020Q4

REPORT INFORMATION
  Report Type: Other
  Country: ES (occurrence: ES)
  Receive Date: 20201026
  Receipt Date: 20201030
  Transmission Date: 20210114
  Serious: Yes (Other)
  Sender: FDA-Public Use
  Company Number: ES-ASTELLAS-2020US037364

PATIENT
  Age: 74 Year
  Sex: Male

DRUGS (1)
  1. XTANDI [Suspect]
     Active Substance: ENZALUTAMIDE
     Indication: PROSTATE CANCER
     Route: 048
     Dates: start: 20200301, end: 20200902

REACTIONS (8)
  - Irritability [Recovering/Resolving]
  - Disturbance in social behaviour [Recovering/Resolving]
  - Optic neuropathy [Unknown]
  - Depression [Recovering/Resolving]
  - Apathy [Recovering/Resolving]
  - Superficial siderosis of central nervous system [Unknown]
  - Ischaemic neuropathy [Unknown]
  - Disturbance in attention [Recovering/Resolving]

NARRATIVE: CASE EVENT DATE: 202008
